FAERS Safety Report 13565275 (Version 7)
Quarter: 2018Q1

REPORT INFORMATION
  Report Type: Spontaneous
  Country: KR (occurrence: KR)
  Receive Date: 20170519
  Receipt Date: 20180221
  Transmission Date: 20180508
  Serious: Yes (Hospitalization, Other)
  Sender: FDA-Public Use
  Company Number: KR-009507513-1611KOR012070

PATIENT
  Age: 46 Year
  Sex: Male
  Weight: 56.2 kg

DRUGS (31)
  1. CURAN [Concomitant]
     Active Substance: RANITIDINE HYDROCHLORIDE
     Dosage: 50 MG, ONCE
     Route: 042
     Dates: start: 20160817, end: 20160817
  2. SANCUSO [Concomitant]
     Active Substance: GRANISETRON
     Indication: PROPHYLAXIS OF NAUSEA AND VOMITING
     Dosage: 1 ^EA^, QD; STRENGTH: 80.2X66.6 MM3
     Route: 062
     Dates: start: 20160718, end: 20160724
  3. CISPLAN [Suspect]
     Active Substance: CISPLATIN
     Indication: SMALL CELL LUNG CANCER
     Dosage: 109 MG, ONCE; CYCLE 4, STRENGTH: 50MG/100ML
     Route: 042
     Dates: start: 20160719, end: 20160719
  4. CISPLAN [Suspect]
     Active Substance: CISPLATIN
     Dosage: 111.3 MG, ONCE, CYCLE 5
     Route: 042
     Dates: start: 20160817, end: 20160817
  5. CURAN [Concomitant]
     Active Substance: RANITIDINE HYDROCHLORIDE
     Indication: PROPHYLAXIS
     Dosage: 150 MG, BID
     Route: 048
     Dates: start: 20160720, end: 20160720
  6. LASIX [Concomitant]
     Active Substance: FUROSEMIDE
     Dosage: 20 MG, ONCE
     Route: 042
     Dates: start: 20160907, end: 20160907
  7. EMEND (FOSAPREPITANT DIMEGLUMINE) [Suspect]
     Active Substance: FOSAPREPITANT DIMEGLUMINE
     Dosage: 150 MG, ONCE
     Route: 042
     Dates: start: 20160817, end: 20160817
  8. LASTET [Suspect]
     Active Substance: ETOPOSIDE
     Dosage: 159 MG, QD
     Route: 042
     Dates: start: 20160817, end: 20160819
  9. LASTET [Suspect]
     Active Substance: ETOPOSIDE
     Dosage: 164 MG, QD
     Route: 042
     Dates: start: 20160907, end: 20160909
  10. APETROL ES [Concomitant]
     Indication: DECREASED APPETITE
     Dosage: 5.2 ML, QD
     Route: 048
     Dates: start: 20160620, end: 20161024
  11. SANCUSO [Concomitant]
     Active Substance: GRANISETRON
     Dosage: 1 ^EA^, QD
     Route: 062
     Dates: start: 20160906, end: 20160912
  12. NESP [Concomitant]
     Active Substance: DARBEPOETIN ALFA
     Indication: COLONY STIMULATING FACTOR THERAPY
     Dosage: 380 MICROGRAM, ONCE (6.75MICROGRAM/KG)
     Route: 042
     Dates: start: 20160817, end: 20160817
  13. HALCION [Concomitant]
     Active Substance: TRIAZOLAM
     Indication: INSOMNIA
     Dosage: 0.25 MG, QD
     Route: 048
     Dates: start: 20160720
  14. CURAN [Concomitant]
     Active Substance: RANITIDINE HYDROCHLORIDE
     Dosage: 150 MG, TID
     Route: 048
     Dates: start: 20160818, end: 20160820
  15. SANCUSO [Concomitant]
     Active Substance: GRANISETRON
     Dosage: 1 ^EA^, QD
     Route: 062
     Dates: start: 20160816, end: 20160822
  16. LASTET [Suspect]
     Active Substance: ETOPOSIDE
     Indication: SMALL CELL LUNG CANCER
     Dosage: 157 MG, QD; STRENGTH: 100MG/5ML
     Route: 042
     Dates: start: 20160719, end: 20160721
  17. DEXAMETHASONE SODIUM PHOSPHATE. [Concomitant]
     Active Substance: DEXAMETHASONE SODIUM PHOSPHATE
     Indication: PROPHYLAXIS OF NAUSEA AND VOMITING
     Dosage: 12 MG, ONCE, STRENGTH: 5MG/ML
     Route: 042
     Dates: start: 20160719, end: 20160719
  18. DEXAMETHASONE SODIUM PHOSPHATE. [Concomitant]
     Active Substance: DEXAMETHASONE SODIUM PHOSPHATE
     Dosage: 12 MG, ONCE
     Route: 042
     Dates: start: 20160907, end: 20160907
  19. DEXAMETHASONE. [Concomitant]
     Active Substance: DEXAMETHASONE
     Dosage: 4 MG, BID
     Route: 048
     Dates: start: 20160818, end: 20160820
  20. CURAN [Concomitant]
     Active Substance: RANITIDINE HYDROCHLORIDE
     Dosage: 150 MG, BID
     Route: 048
     Dates: start: 20160908, end: 20160910
  21. LASIX [Concomitant]
     Active Substance: FUROSEMIDE
     Dosage: 20 MG, ONCE
     Route: 042
     Dates: start: 20160817, end: 20160817
  22. DEXAMETHASONE SODIUM PHOSPHATE. [Concomitant]
     Active Substance: DEXAMETHASONE SODIUM PHOSPHATE
     Dosage: 12 MG, ONCE
     Route: 042
     Dates: start: 20160817, end: 20160817
  23. LASIX [Concomitant]
     Active Substance: FUROSEMIDE
     Indication: PROPHYLAXIS
     Dosage: 20 MG, ONCE; STRENGTH: 20MG/ML
     Route: 042
     Dates: start: 20160719, end: 20160719
  24. EMEND (FOSAPREPITANT DIMEGLUMINE) [Suspect]
     Active Substance: FOSAPREPITANT DIMEGLUMINE
     Indication: PROPHYLAXIS OF NAUSEA AND VOMITING
     Dosage: 150 MG, ONCE
     Route: 042
     Dates: start: 20160719, end: 20160719
  25. DEXAMETHASONE. [Concomitant]
     Active Substance: DEXAMETHASONE
     Indication: PROPHYLAXIS OF NAUSEA AND VOMITING
     Dosage: 4 MG, BID
     Route: 048
     Dates: start: 20160720, end: 20160722
  26. DEXAMETHASONE. [Concomitant]
     Active Substance: DEXAMETHASONE
     Dosage: 4 MG, BID
     Route: 048
     Dates: start: 20160908, end: 20160910
  27. CURAN [Concomitant]
     Active Substance: RANITIDINE HYDROCHLORIDE
     Indication: PROPHYLAXIS
     Dosage: 50 MG, ONCE; STRENGTH: 50MG/2ML
     Route: 042
     Dates: start: 20160719, end: 20160719
  28. EMEND (FOSAPREPITANT DIMEGLUMINE) [Suspect]
     Active Substance: FOSAPREPITANT DIMEGLUMINE
     Dosage: 150 MG, ONCE
     Route: 042
     Dates: start: 20160907, end: 20160907
  29. CISPLAN [Suspect]
     Active Substance: CISPLATIN
     Dosage: 114 MG, ONCE, CYCLE 6
     Route: 042
     Dates: start: 20160907, end: 20160907
  30. CENTRUM SILVER ADVANCE (MINERALS (UNSPECIFIED) (+) VITAMINS (UNSPECIFI [Concomitant]
     Indication: PROPHYLAXIS
     Dosage: 1 TABLET, QD
     Route: 048
     Dates: start: 20160415
  31. CURAN [Concomitant]
     Active Substance: RANITIDINE HYDROCHLORIDE
     Dosage: 50 MG, ONCE
     Route: 042
     Dates: start: 20160907, end: 20160907

REACTIONS (3)
  - Neutropenia [Not Recovered/Not Resolved]
  - Necrosis [Recovered/Resolved]
  - Febrile neutropenia [Not Recovered/Not Resolved]

NARRATIVE: CASE EVENT DATE: 201609
